FAERS Safety Report 11210114 (Version 1)
Quarter: 2015Q2

REPORT INFORMATION
  Report Type: Spontaneous
  Country: US (occurrence: US)
  Receive Date: 20150622
  Receipt Date: 20150622
  Transmission Date: 20150821
  Serious: No
  Sender: FDA-Public Use
  Company Number: US-TAKEDA-2015TUS007948

PATIENT
  Sex: Male

DRUGS (4)
  1. PREVACID [Suspect]
     Active Substance: LANSOPRAZOLE
     Indication: GASTROOESOPHAGEAL REFLUX DISEASE
     Dosage: ONE CAPSULE, BID
     Route: 048
  2. PREVACID SOLUTAB [Suspect]
     Active Substance: LANSOPRAZOLE
     Indication: GASTROINTESTINAL DISORDER
  3. PREVACID [Suspect]
     Active Substance: LANSOPRAZOLE
     Indication: GASTROINTESTINAL DISORDER
  4. PREVACID SOLUTAB [Suspect]
     Active Substance: LANSOPRAZOLE
     Indication: GASTROOESOPHAGEAL REFLUX DISEASE
     Dosage: ONE TABLET, BID
     Route: 048

REACTIONS (1)
  - Drug ineffective for unapproved indication [Recovered/Resolved]
